FAERS Safety Report 9096992 (Version 1)
Quarter: 2013Q1

REPORT INFORMATION
  Report Type: Spontaneous
  Country: DE (occurrence: None)
  Receive Date: 20130124
  Receipt Date: 20130124
  Transmission Date: 20140127
  Serious: Yes (Death)
  Sender: FDA-Public Use
  Company Number: GER/GER/13/0027520

PATIENT
  Age: 81 Year
  Sex: Male

DRUGS (6)
  1. METFORMIN (METFORMIN) [Suspect]
     Indication: TYPE 2 DIABETES MELLITUS
     Dates: start: 2007
  2. MARCUMAR (PHENPROCOUMON) [Concomitant]
  3. BISOPROLOL PLUS (BISELECT) [Concomitant]
  4. RAMIPRIL COMP. (SALUTEC) [Concomitant]
  5. SIMVAHEXAL (SIMVASTATIN) [Concomitant]
  6. THYRONAJOD (JODTHYROX) [Concomitant]

REACTIONS (1)
  - Lactic acidosis [None]
